FAERS Safety Report 10905228 (Version 1)
Quarter: 2015Q1

REPORT INFORMATION
  Report Type: Spontaneous
  Country: US (occurrence: None)
  Receive Date: 20150309
  Receipt Date: 20150309
  Transmission Date: 20150721
  Serious: Yes (Life-Threatening, Hospitalization, Disabling, Other)
  Sender: FDA-Public Use
  Company Number: None

PATIENT
  Age: 7 Year
  Sex: Male
  Weight: 28.58 kg

DRUGS (2)
  1. HYDROXYUREA. [Suspect]
     Active Substance: HYDROXYUREA
     Indication: PROPHYLAXIS
     Route: 048
     Dates: start: 20141120, end: 20150306
  2. HYDROXYUREA. [Suspect]
     Active Substance: HYDROXYUREA
     Indication: PAIN
     Route: 048
     Dates: start: 20141120, end: 20150306

REACTIONS (6)
  - Hallucination [None]
  - Dizziness [None]
  - Muscular weakness [None]
  - Pain [None]
  - Fall [None]
  - Silent myocardial infarction [None]

NARRATIVE: CASE EVENT DATE: 20150211
